FAERS Safety Report 9599651 (Version 1)
Quarter: 2013Q4

REPORT INFORMATION
  Report Type: Spontaneous
  Country: US (occurrence: US)
  Receive Date: 20131004
  Receipt Date: 20131004
  Transmission Date: 20140711
  Serious: No
  Sender: FDA-Public Use
  Company Number: US-AMGEN-USASP2013031205

PATIENT
  Age: 63 Year
  Sex: Male

DRUGS (1)
  1. ENBREL [Suspect]
     Indication: RHEUMATOID ARTHRITIS
     Dosage: 50 MG, QWK
     Dates: start: 20120815, end: 201302

REACTIONS (7)
  - Pain [Not Recovered/Not Resolved]
  - Local swelling [Recovered/Resolved]
  - Odynophagia [Recovered/Resolved]
  - Joint swelling [Recovered/Resolved]
  - Drug ineffective [Not Recovered/Not Resolved]
  - Sinusitis [Recovered/Resolved]
  - Oesophageal infection [Recovered/Resolved]
